FAERS Safety Report 9289248 (Version 1)
Quarter: 2013Q2

REPORT INFORMATION
  Report Type: Spontaneous
  Country: BR (occurrence: BR)
  Receive Date: 20130514
  Receipt Date: 20130514
  Transmission Date: 20140414
  Serious: Yes (Other)
  Sender: FDA-Public Use
  Company Number: BR-ELI_LILLY_AND_COMPANY-BR201304003792

PATIENT
  Age: 56 Year
  Sex: Male
  Weight: 77 kg

DRUGS (3)
  1. CIALIS [Suspect]
     Indication: SEXUAL DYSFUNCTION
     Dosage: 20 MG, PRN
     Route: 048
     Dates: start: 201204
  2. LOSARTAN [Concomitant]
     Dosage: 250 MG, EACH MORNING
     Route: 065
  3. RIVOTRIL [Concomitant]
     Dosage: 2.5 MG, QD
     Route: 065
     Dates: start: 201204

REACTIONS (3)
  - Haemorrhage [Unknown]
  - Intentional drug misuse [Unknown]
  - Drug ineffective [Recovered/Resolved]
